FAERS Safety Report 18961955 (Version 1)
Quarter: 2021Q1

REPORT INFORMATION
  Report Type: Spontaneous
  Country: US (occurrence: US)
  Receive Date: 20210302
  Receipt Date: 20210302
  Transmission Date: 20210420
  Serious: Yes (Hospitalization)
  Sender: FDA-Public Use
  Company Number: None

PATIENT
  Age: 81 Year
  Sex: Male
  Weight: 89 kg

DRUGS (1)
  1. CEFEPIME (CEFEPIME HCL 1GM/BAG INJ) [Suspect]
     Active Substance: CEFEPIME HYDROCHLORIDE
     Indication: UPPER RESPIRATORY TRACT INFECTION
     Route: 042
     Dates: start: 20200807, end: 20200813

REACTIONS (3)
  - Encephalopathy [None]
  - Toxicity to various agents [None]
  - Unresponsive to stimuli [None]

NARRATIVE: CASE EVENT DATE: 20200813
